FAERS Safety Report 24040675 (Version 1)
Quarter: 2024Q3

REPORT INFORMATION
  Report Type: Spontaneous
  Country: US (occurrence: None)
  Receive Date: 20240701
  Receipt Date: 20240701
  Transmission Date: 20241017
  Serious: Yes (unspecified)
  Sender: Public
  Company Number: None

PATIENT
  Age: 68 Year
  Sex: Male
  Weight: 87 kg

DRUGS (1)
  1. GAMMAPLEX [Suspect]
     Active Substance: HUMAN IMMUNOGLOBULIN G
     Indication: Chronic inflammatory demyelinating polyradiculoneuropathy
     Dosage: 80 GRAMS INTRAVENOUS ?
     Route: 042
     Dates: start: 20240627, end: 20240627

REACTIONS (2)
  - Swollen tongue [None]
  - Infusion related reaction [None]

NARRATIVE: CASE EVENT DATE: 20240628
